FAERS Safety Report 15585319 (Version 5)
Quarter: 2018Q4

REPORT INFORMATION
  Report Type: Spontaneous
  Country: FR (occurrence: FR)
  Receive Date: 20181102
  Receipt Date: 20181124
  Transmission Date: 20190205
  Serious: Yes (Death, Hospitalization)
  Sender: FDA-Public Use
  Company Number: FR-CELGENEUS-FRA-20181010500

PATIENT
  Age: 78 Year
  Sex: Female
  Weight: 47 kg

DRUGS (17)
  1. GAVISCON [Concomitant]
     Active Substance: ALUMINUM HYDROXIDE\MAGNESIUM CARBONATE
     Indication: ABDOMINAL PAIN UPPER
     Route: 048
     Dates: start: 20180322
  2. VFEND [Concomitant]
     Active Substance: VORICONAZOLE
     Indication: ASPERGILLUS INFECTION
     Dosage: 636 MILLIGRAM
     Route: 041
     Dates: start: 20180416, end: 20180417
  3. PHOSPHONEUROL [Concomitant]
     Indication: HYPOPHOSPHATAEMIA
     Dosage: 800 MILLIGRAM
     Route: 048
     Dates: start: 20180412
  4. VENETOCLAX. [Concomitant]
     Active Substance: VENETOCLAX
     Dosage: 200 MILLIGRAM
     Route: 048
     Dates: start: 20180320, end: 20180320
  5. DIFFU-K [Concomitant]
     Active Substance: POTASSIUM CHLORIDE
     Indication: HYPOKALAEMIA
     Dosage: 1800 MILLIGRAM
     Route: 048
     Dates: start: 20180409
  6. AZACITIDINE INJECTABLE [Suspect]
     Active Substance: AZACITIDINE
     Indication: ACUTE MYELOID LEUKAEMIA
     Dosage: 75 MILLIGRAM/SQ. METER
     Route: 058
     Dates: start: 20180319, end: 20180506
  7. VALACICLOVIR [Concomitant]
     Active Substance: VALACYCLOVIR HYDROCHLORIDE
     Indication: HERPES VIRUS INFECTION
     Dosage: 1000 MILLIGRAM
     Route: 048
     Dates: start: 20180411, end: 20180709
  8. PANTOPRAZOLE [Concomitant]
     Active Substance: PANTOPRAZOLE
     Dosage: 40 MILLIGRAM
     Route: 048
     Dates: start: 20180415
  9. VENETOCLAX. [Concomitant]
     Active Substance: VENETOCLAX
     Indication: ACUTE MYELOID LEUKAEMIA
     Dosage: 100 MILLIGRAM
     Route: 048
     Dates: start: 20180319, end: 20180319
  10. VALACICLOVIR [Concomitant]
     Active Substance: VALACYCLOVIR HYDROCHLORIDE
     Dosage: 3000 MILLIGRAM
     Route: 048
     Dates: start: 20180404, end: 20180709
  11. MAG 2 [Concomitant]
     Active Substance: MAGNESIUM CHLORIDE
     Indication: HYPOMAGNESAEMIA
     Dosage: 4500 MILLIGRAM
     Route: 048
     Dates: start: 20180409, end: 20180709
  12. MEROPENEM. [Concomitant]
     Active Substance: MEROPENEM
     Indication: INFECTION PROPHYLAXIS
     Dosage: 3000 MILLIGRAM
     Route: 041
     Dates: start: 20180409
  13. VFEND [Concomitant]
     Active Substance: VORICONAZOLE
     Dosage: 400 MILLIGRAM
     Route: 048
     Dates: start: 20180418
  14. VENETOCLAX. [Concomitant]
     Active Substance: VENETOCLAX
     Dosage: 400 MILLIGRAM
     Route: 048
     Dates: start: 20180321, end: 20180415
  15. BICARBONATE SODIUM [Concomitant]
     Active Substance: SODIUM BICARBONATE
     Indication: PETECHIAE
     Dosage: 4500 MILLILITER
     Route: 041
     Dates: start: 20180410
  16. VENETOCLAX. [Concomitant]
     Active Substance: VENETOCLAX
     Dosage: 50 MILLIGRAM
     Route: 048
     Dates: start: 20180430, end: 20180528
  17. PANTOPRAZOLE [Concomitant]
     Active Substance: PANTOPRAZOLE
     Indication: ABDOMINAL PAIN UPPER
     Dosage: 20 MILLIGRAM
     Route: 048
     Dates: start: 20180407, end: 20180414

REACTIONS (1)
  - Sepsis [Fatal]

NARRATIVE: CASE EVENT DATE: 20180527
